FAERS Safety Report 7536715-6 (Version None)
Quarter: 2011Q2

REPORT INFORMATION
  Report Type: 
  Country: None (occurrence: None)
  Receive Date: 20110609
  Receipt Date: 20110428
  Transmission Date: 20111010
  Serious: Yes (Other)
  Sender: FDA-Public Use
  Company Number: B0717484A

PATIENT
  Sex: Female
  Weight: 71 kg

DRUGS (7)
  1. VENTOLIN HFA [Suspect]
     Indication: ASTHMA
     Dosage: 2PUFF AS REQUIRED
     Route: 065
  2. NEXIUM [Concomitant]
     Indication: CHRONIC OBSTRUCTIVE PULMONARY DISEASE
     Dates: start: 20071217
  3. LEVONORGESTREL AND ETHINYL ESTRADIOL [Concomitant]
     Indication: CONTRACEPTION
  4. SYMBICORT [Concomitant]
     Indication: ASTHMA
     Dosage: 2PUFF TWICE PER DAY
  5. NASONEX [Concomitant]
     Dosage: 1PUFF PER DAY
     Dates: start: 20100101
  6. DUROMINE [Concomitant]
     Dates: start: 20110218
  7. THYROXIN [Concomitant]
     Indication: HYPOTHYROIDISM
     Dates: start: 20050726

REACTIONS (6)
  - THROAT IRRITATION [None]
  - BURNING SENSATION [None]
  - DYSGEUSIA [None]
  - PRODUCT QUALITY ISSUE [None]
  - ORAL DISCOMFORT [None]
  - PAROSMIA [None]
